FAERS Safety Report 12679571 (Version 1)
Quarter: 2016Q3

REPORT INFORMATION
  Report Type: Spontaneous
  Country: US (occurrence: None)
  Receive Date: 20160823
  Receipt Date: 20160823
  Transmission Date: 20161109
  Serious: Yes (Other)
  Sender: FDA-Public Use
  Company Number: None

PATIENT
  Age: 72 Year
  Sex: Female
  Weight: 61.24 kg

DRUGS (6)
  1. CENTRUM SILVER [Concomitant]
     Active Substance: MINERALS\VITAMINS
  2. METRONIDAZOLE. [Suspect]
     Active Substance: METRONIDAZOLE
     Indication: BACTERIAL VAGINOSIS
     Route: 048
     Dates: start: 20160815, end: 20160818
  3. METAMUCIL [Concomitant]
     Active Substance: PLANTAGO SEED
  4. CITRICAL PETITE [Concomitant]
  5. VYTORIN [Concomitant]
     Active Substance: EZETIMIBE\SIMVASTATIN
  6. WELCHOL [Concomitant]
     Active Substance: COLESEVELAM HYDROCHLORIDE

REACTIONS (7)
  - Abdominal pain upper [None]
  - Dysgeusia [None]
  - Balance disorder [None]
  - Pruritus [None]
  - Blister [None]
  - Meningitis aseptic [None]
  - Eczema [None]

NARRATIVE: CASE EVENT DATE: 20160819
